FAERS Safety Report 7361091-1 (Version None)
Quarter: 2011Q1

REPORT INFORMATION
  Report Type: 
  Country: None (occurrence: None)
  Receive Date: 20110318
  Receipt Date: 20110314
  Transmission Date: 20110831
  Serious: Yes (Death, Hospitalization)
  Sender: FDA-Public Use
  Company Number: FR-ROCHE-764645

PATIENT
  Sex: Male
  Weight: 74 kg

DRUGS (19)
  1. ROVALCYTE [Concomitant]
     Dates: start: 20110111
  2. LANTUS [Concomitant]
     Dosage: DOSE AS REPORTED: 160 U
     Dates: start: 20110117
  3. EVEROLIMUS [Suspect]
     Route: 048
     Dates: start: 20110222
  4. NOVORAPID [Concomitant]
     Dates: start: 20110117, end: 20110301
  5. PREDNISONE [Suspect]
     Route: 048
     Dates: start: 20110106
  6. NIFEDIPINE [Concomitant]
     Dates: start: 20110110
  7. CALCIDIA [Concomitant]
     Dates: start: 20110112
  8. MYCOPHENOLATE MOFETIL [Suspect]
     Route: 048
     Dates: start: 20110105
  9. SODIUM BICARBONATE [Concomitant]
     Dates: start: 20110112
  10. INIPOMP [Concomitant]
     Dates: start: 20110106
  11. ESIDRIX [Concomitant]
     Dates: start: 20110217, end: 20110301
  12. KARDEGIC [Concomitant]
     Dates: start: 20110112, end: 20110301
  13. BACTRIM [Concomitant]
     Dates: start: 20110111
  14. CARDENSIEL [Concomitant]
     Dates: start: 20110106
  15. PHOSPHONEUROS [Concomitant]
     Dates: start: 20110112, end: 20110217
  16. BISOPROLOL FUMARATE [Concomitant]
     Dates: start: 20110301
  17. MIRCERA [Concomitant]
     Dosage: FREQUENCY: EVERY OTHER WEEK
     Dates: start: 20110307
  18. PHOSPHONEUROS [Concomitant]
     Dates: start: 20110301
  19. EPREX [Concomitant]
     Dosage: ODSE AS REPORTED:; 10000, FREQUENCY: 3 TIMES A WEEK
     Dates: start: 20110303, end: 20110306

REACTIONS (2)
  - SUDDEN DEATH [None]
  - POSTRENAL FAILURE [None]
